FAERS Safety Report 9979843 (Version 1)
Quarter: 2014Q1

REPORT INFORMATION
  Report Type: Report from Study
  Country: US (occurrence: US)
  Receive Date: 20140306
  Receipt Date: 20140306
  Transmission Date: 20141002
  Serious: No
  Sender: FDA-Public Use
  Company Number: US-ABBVIE-13P-163-1172595-00

PATIENT
  Age: 56 Year
  Sex: Male

DRUGS (2)
  1. HUMIRA [Suspect]
     Indication: PSORIASIS
     Dates: start: 20131029
  2. FUROSEMIDE [Concomitant]
     Indication: LOCAL SWELLING
     Dates: start: 201311

REACTIONS (3)
  - Ingrown hair [Recovering/Resolving]
  - Rash maculo-papular [Not Recovered/Not Resolved]
  - Oedema peripheral [Not Recovered/Not Resolved]
